FAERS Safety Report 14172762 (Version 1)
Quarter: 2017Q4

REPORT INFORMATION
  Report Type: Spontaneous
  Country: FR (occurrence: FR)
  Receive Date: 20171109
  Receipt Date: 20171109
  Transmission Date: 20180321
  Serious: Yes (Other)
  Sender: FDA-Public Use
  Company Number: FR-MERCK KGAA-2033635

PATIENT
  Age: 56 Year
  Sex: Male

DRUGS (3)
  1. NOVOTHYROX [Suspect]
     Active Substance: LEVOTHYROXINE SODIUM
     Dates: start: 201704
  2. NOVOTHYROX [Suspect]
     Active Substance: LEVOTHYROXINE SODIUM
     Indication: POST PROCEDURAL HYPOTHYROIDISM
     Dates: start: 201704
  3. NOVOTHYROX [Suspect]
     Active Substance: LEVOTHYROXINE SODIUM

REACTIONS (16)
  - Hyperthyroidism [Not Recovered/Not Resolved]
  - Aggression [None]
  - Fatigue [None]
  - Blood thyroid stimulating hormone decreased [None]
  - Depression [None]
  - Anxiety [None]
  - Gait disturbance [None]
  - Migraine [None]
  - Alopecia [None]
  - Abdominal pain [None]
  - Insomnia [None]
  - Arthralgia [None]
  - Weight decreased [None]
  - Muscle spasms [None]
  - Thyroxine free increased [None]
  - Hyperhidrosis [None]

NARRATIVE: CASE EVENT DATE: 2017
